FAERS Safety Report 8615568-9 (Version None)
Quarter: 2012Q3

REPORT INFORMATION
  Report Type: 
  Country: None (occurrence: None)
  Receive Date: 20120823
  Receipt Date: 20120816
  Transmission Date: 20120928
  Serious: Yes (Hospitalization, Other)
  Sender: FDA-Public Use
  Company Number: PHEH2012US014236

PATIENT
  Sex: Female
  Weight: 72.562 kg

DRUGS (13)
  1. GILENYA [Suspect]
     Indication: MULTIPLE SCLEROSIS
     Dosage: 0.5 MG, DAILY
     Route: 048
     Dates: start: 20120523, end: 20120722
  2. ZANAFLEX [Concomitant]
  3. LOPRESSOR [Concomitant]
  4. OMEPRAZOLE [Concomitant]
  5. ASPIRIN [Concomitant]
  6. VITAMIN D [Concomitant]
  7. ASPIRIN [Concomitant]
  8. ATIVAN [Concomitant]
  9. NUVIGIL [Concomitant]
  10. METOPROLOL TARTRATE [Concomitant]
  11. PRAVASTATIN [Concomitant]
  12. EFFEXOR [Concomitant]
  13. MULTI-VITAMINS [Concomitant]

REACTIONS (7)
  - FATIGUE [None]
  - MULTIPLE SCLEROSIS RELAPSE [None]
  - CYSTITIS [None]
  - DYSARTHRIA [None]
  - CEREBROVASCULAR ACCIDENT [None]
  - ARTERIAL OCCLUSIVE DISEASE [None]
  - CENTRAL NERVOUS SYSTEM LESION [None]
